FAERS Safety Report 22863188 (Version 2)
Quarter: 2024Q2

REPORT INFORMATION
  Report Type: Spontaneous
  Country: FR (occurrence: FR)
  Receive Date: 20230824
  Receipt Date: 20240504
  Transmission Date: 20240716
  Serious: Yes (Other)
  Sender: FDA-Public Use
  Company Number: None

PATIENT
  Age: 56 Year
  Sex: Female
  Weight: 65 kg

DRUGS (13)
  1. PACLITAXEL [Suspect]
     Active Substance: PACLITAXEL
     Indication: Cervix carcinoma
     Dosage: TIME INTERVAL: TOTAL
     Route: 042
     Dates: start: 20230628, end: 20230628
  2. VOGALENE [Concomitant]
     Active Substance: METOPIMAZINE
     Indication: Vomiting
     Dosage: TIME INTERVAL: AS NECESSARY
     Route: 048
     Dates: start: 20230628, end: 20230701
  3. AVASTIN [Suspect]
     Active Substance: BEVACIZUMAB
     Indication: Cervix carcinoma
     Dosage: TIME INTERVAL: TOTAL
     Route: 065
     Dates: start: 20230628, end: 20230628
  4. ONDANSETRON [Concomitant]
     Active Substance: ONDANSETRON
     Indication: Chemotherapy side effect prophylaxis
     Dosage: TIME INTERVAL: CYCLICAL
     Route: 065
     Dates: start: 20230628, end: 20230628
  5. KEYTRUDA [Suspect]
     Active Substance: PEMBROLIZUMAB
     Indication: Cervix carcinoma
     Dosage: TIME INTERVAL: TOTAL
     Route: 042
     Dates: start: 20230628, end: 20230628
  6. LEVOTHYROXINE [Concomitant]
     Active Substance: LEVOTHYROXINE\LEVOTHYROXINE SODIUM
     Indication: Product used for unknown indication
     Route: 048
  7. ALPRAZOLAM [Concomitant]
     Active Substance: ALPRAZOLAM
     Indication: Product used for unknown indication
     Route: 048
  8. APREPITANT [Concomitant]
     Active Substance: APREPITANT
     Indication: Chemotherapy side effect prophylaxis
     Dosage: TIME INTERVAL: 1 CYCLICAL: APREPITANT
     Route: 048
     Dates: start: 20230628, end: 20230628
  9. CIMETIDINE [Suspect]
     Active Substance: CIMETIDINE
     Indication: Chemotherapy side effect prophylaxis
     Dosage: TIME INTERVAL: CYCLICAL
     Route: 048
     Dates: start: 20230628, end: 20230628
  10. HERBALS\HOMEOPATHICS\PASSIFLORA INCARNATA FLOWER [Concomitant]
     Active Substance: HERBALS\HOMEOPATHICS\PASSIFLORA INCARNATA FLOWER
     Indication: Product used for unknown indication
     Route: 048
  11. CARBOPLATIN [Concomitant]
     Active Substance: CARBOPLATIN
     Indication: Cervix carcinoma
     Dosage: TIME INTERVAL: TOTAL
     Route: 042
     Dates: start: 20230628, end: 20230628
  12. DEXCHLORPHENIRAMINE MALEATE [Suspect]
     Active Substance: DEXCHLORPHENIRAMINE MALEATE
     Indication: Chemotherapy side effect prophylaxis
     Dosage: TIME INTERVAL: CYCLICAL
     Route: 065
     Dates: start: 20230628, end: 20230628
  13. NEBIVOLOL [Concomitant]
     Active Substance: NEBIVOLOL
     Indication: Product used for unknown indication
     Route: 048

REACTIONS (3)
  - Erythema [Recovering/Resolving]
  - Rash macular [Recovering/Resolving]
  - Neutropenia [Recovered/Resolved]

NARRATIVE: CASE EVENT DATE: 20230702
